FAERS Safety Report 13731642 (Version 1)
Quarter: 2017Q3

REPORT INFORMATION
  Report Type: Other
  Country: None (occurrence: US)
  Receive Date: 20170707
  Receipt Date: 20170707
  Transmission Date: 20171127
  Serious: Yes (Other)
  Sender: FDA-Public Use
  Company Number: US-GUTHY-RENKER LLC-2023088

PATIENT
  Sex: Male

DRUGS (2)
  1. X-OUT WASH-IN TREATMENT [Suspect]
     Active Substance: BENZOYL PEROXIDE
     Indication: ACNE
     Route: 061
     Dates: start: 20160317, end: 20160329
  2. X OUT CLEANSING BODY BAR [Suspect]
     Active Substance: SALICYLIC ACID
     Route: 061
     Dates: start: 20160317, end: 20160329

REACTIONS (1)
  - Optic nerve injury [Recovering/Resolving]

NARRATIVE: CASE EVENT DATE: 20160329
